FAERS Safety Report 4630947-2 (Version None)
Quarter: 2005Q2

REPORT INFORMATION
  Report Type: 
  Country: None (occurrence: None)
  Receive Date: 20050407
  Receipt Date: 20050407
  Transmission Date: 20051028
  Serious: No
  Sender: FDA-Public Use
  Company Number: None

PATIENT
  Age: 68 Year
  Sex: Male
  Weight: 72.7 kg

DRUGS (3)
  1. CETUXIMAB [Suspect]
     Indication: OESOPHAGEAL CARCINOMA
     Dosage: 3172 MG QWX6WK - IV
     Route: 042
     Dates: start: 20041215, end: 20050119
  2. TAXOL [Suspect]
     Indication: OESOPHAGEAL CARCINOMA
     Dosage: 470 MG-QWX6WK - IV
     Route: 042
     Dates: start: 20041215, end: 20050119
  3. CARBOPLATIN [Suspect]
     Indication: OESOPHAGEAL CARCINOMA
     Dosage: 94 MG - QWX6WK - IV
     Route: 042
     Dates: start: 20041214, end: 20050119

REACTIONS (4)
  - ASTHENIA [None]
  - DEHYDRATION [None]
  - DYSPNOEA [None]
  - PULMONARY EMBOLISM [None]
